FAERS Safety Report 8473500 (Version 2)
Quarter: 2012Q4

REPORT INFORMATION
  Report Type: 
  Country: US (occurrence: US)
  Receive Date: 20120323
  Receipt Date: 20120828
  Transmission Date: 20130627
  Serious: Yes (Life-Threatening, Hospitalization)
  Sender: FDA-Public Use
  Company Number: US-BAYER-2012-027404

PATIENT
  Age: 21 Year
  Sex: Female

DRUGS (4)
  1. YAZ [Suspect]
     Indication: PREMENSTRUAL SYNDROME
  2. YAZ [Suspect]
     Indication: CONTRACEPTION
  3. YASMIN [Suspect]
  4. OCELLA [Suspect]

REACTIONS (6)
  - Deep vein thrombosis [Unknown]
  - Injury [None]
  - Pain [Unknown]
  - General physical health deterioration [None]
  - Anxiety [None]
  - Anhedonia [None]
